FAERS Safety Report 9775747 (Version 2)
Quarter: 2014Q1

REPORT INFORMATION
  Report Type: Spontaneous
  Country: FR (occurrence: FR)
  Receive Date: 20131220
  Receipt Date: 20140306
  Transmission Date: 20141002
  Serious: Yes (Hospitalization)
  Sender: FDA-Public Use
  Company Number: FR-BRISTOL-MYERS SQUIBB COMPANY-19914662

PATIENT
  Age: 61 Year
  Sex: Male

DRUGS (2)
  1. HYDREA CAPS 500 MG [Suspect]
     Indication: POLYCYTHAEMIA
     Route: 048
     Dates: start: 20130926, end: 20131104
  2. MICARDIS [Concomitant]

REACTIONS (2)
  - Headache [Recovered/Resolved]
  - Night sweats [Recovered/Resolved]
